FAERS Safety Report 19354351 (Version 1)
Quarter: 2021Q2

REPORT INFORMATION
  Report Type: Spontaneous
  Country: PT (occurrence: PT)
  Receive Date: 20210602
  Receipt Date: 20210602
  Transmission Date: 20210717
  Serious: Yes (Death, Hospitalization)
  Sender: FDA-Public Use
  Company Number: PT-AUROBINDO-AUR-APL-2017-08786

PATIENT
  Age: 66 Year
  Sex: Female

DRUGS (5)
  1. PROPRANOLOL [Concomitant]
     Active Substance: PROPRANOLOL HYDROCHLORIDE
     Indication: INFLUENZA LIKE ILLNESS
     Dosage: UNK
     Route: 065
  2. RANITIDINE. [Suspect]
     Active Substance: RANITIDINE
     Indication: DYSPEPSIA
  3. MEXAZOLAM [Concomitant]
     Active Substance: MEXAZOLAM
     Indication: INFLUENZA LIKE ILLNESS
     Dosage: UNK
     Route: 065
  4. CETIRIZINE [Concomitant]
     Active Substance: CETIRIZINE HYDROCHLORIDE
     Indication: INFLUENZA LIKE ILLNESS
     Dosage: UNK
     Route: 065
  5. RANITIDINE. [Suspect]
     Active Substance: RANITIDINE
     Indication: INFLUENZA LIKE ILLNESS
     Dosage: UNK
     Route: 065

REACTIONS (7)
  - Acute hepatic failure [Fatal]
  - Hepatic encephalopathy [Fatal]
  - Jaundice [Unknown]
  - Hypovolaemic shock [Fatal]
  - Drug-induced liver injury [Unknown]
  - Hepatitis [Fatal]
  - Gastrointestinal haemorrhage [Fatal]
